FAERS Safety Report 19949018 (Version 1)
Quarter: 2021Q4

REPORT INFORMATION
  Report Type: Spontaneous
  Country: US (occurrence: US)
  Receive Date: 20211012
  Receipt Date: 20211012
  Transmission Date: 20220303
  Serious: Yes (Life-Threatening, Other)
  Sender: FDA-Public Use
  Company Number: None

PATIENT
  Age: 59 Year
  Sex: Female
  Weight: 65.7 kg

DRUGS (4)
  1. BAMLANIVIMAB [Suspect]
     Active Substance: BAMLANIVIMAB
     Indication: COVID-19
     Route: 041
     Dates: start: 20211011, end: 20211011
  2. ETESEVIMAB [Suspect]
     Active Substance: ETESEVIMAB
     Indication: COVID-19
     Route: 041
     Dates: start: 20211011, end: 20211011
  3. BAMLANIVIMAB [Concomitant]
     Active Substance: BAMLANIVIMAB
     Dates: start: 20211011, end: 20211011
  4. ETESEVIMAB [Concomitant]
     Active Substance: ETESEVIMAB
     Dates: start: 20211011, end: 20211011

REACTIONS (4)
  - Infusion related reaction [None]
  - Flushing [None]
  - Tachycardia [None]
  - Refusal of treatment by patient [None]

NARRATIVE: CASE EVENT DATE: 20211011
